FAERS Safety Report 7685806-8 (Version None)
Quarter: 2011Q3

REPORT INFORMATION
  Report Type: 
  Country: None (occurrence: None)
  Receive Date: 20110815
  Receipt Date: 20110815
  Transmission Date: 20111222
  Serious: No
  Sender: FDA-Public Use
  Company Number: None

PATIENT
  Age: 48 Year
  Sex: Male
  Weight: 81.646 kg

DRUGS (1)
  1. GENTAMICIN [Suspect]
     Indication: STAPHYLOCOCCAL INFECTION
     Dates: start: 20080624, end: 20080627

REACTIONS (5)
  - DEAFNESS [None]
  - BALANCE DISORDER [None]
  - OTOTOXICITY [None]
  - VESTIBULAR DISORDER [None]
  - OSCILLOPSIA [None]
